FAERS Safety Report 7721123-5 (Version None)
Quarter: 2011Q3

REPORT INFORMATION
  Report Type: 
  Country: None (occurrence: None)
  Receive Date: 20110825
  Receipt Date: 20110811
  Transmission Date: 20111222
  Serious: Yes (Other)
  Sender: FDA-Public Use
  Company Number: 1000021731

PATIENT
  Sex: Male

DRUGS (3)
  1. ANXIOLYTICS (ANXIOLYTICS) (ANXIOLYTICS) [Concomitant]
  2. CITALOPRAM HYDROBROMIDE [Suspect]
     Dosage: 30 MG (30 MG, 1 IN 1 D)
  3. CITALOPRAM HYDROBROMIDE [Suspect]
     Dosage: 30 MG (30 MG, 1 IN 1 D); 20 MG (20 MG, 1 IN 1 D); 10 MG (10 MG, 1 IN 1)

REACTIONS (6)
  - DRUG DEPENDENCE [None]
  - WITHDRAWAL SYNDROME [None]
  - INJURY [None]
  - SUICIDE ATTEMPT [None]
  - OVERDOSE [None]
  - ROAD TRAFFIC ACCIDENT [None]
